FAERS Safety Report 11735192 (Version 2)
Quarter: 2017Q1

REPORT INFORMATION
  Report Type: Spontaneous
  Country: US (occurrence: US)
  Receive Date: 20151113
  Receipt Date: 20170302
  Transmission Date: 20170428
  Serious: Yes (Other)
  Sender: FDA-Public Use
  Company Number: US-ELI_LILLY_AND_COMPANY-US201511002521

PATIENT
  Age: 53 Year
  Sex: Male
  Weight: 90.7 kg

DRUGS (3)
  1. CYMBALTA [Suspect]
     Active Substance: DULOXETINE HYDROCHLORIDE
     Indication: DEPRESSION
     Dosage: 60 MG, QD
     Route: 048
     Dates: start: 20150108
  2. CYMBALTA [Suspect]
     Active Substance: DULOXETINE HYDROCHLORIDE
     Dosage: 60 MG, BID
  3. CYMBALTA [Suspect]
     Active Substance: DULOXETINE HYDROCHLORIDE
     Indication: PAIN
     Dosage: 60 MG, BID
     Route: 048
     Dates: end: 201404

REACTIONS (24)
  - Vertigo [Unknown]
  - Dysphoria [Unknown]
  - Confusional state [Unknown]
  - Headache [Unknown]
  - Sensory disturbance [Unknown]
  - Hyperhidrosis [Unknown]
  - Irritability [Unknown]
  - Nausea [Unknown]
  - Dizziness [Unknown]
  - Tremor [Unknown]
  - Dyspnoea [Unknown]
  - Lethargy [Unknown]
  - Seizure [Unknown]
  - Insomnia [Unknown]
  - Agitation [Unknown]
  - Chest pain [Unknown]
  - Paraesthesia [Unknown]
  - Sleep disorder [Unknown]
  - Fatigue [Unknown]
  - Suicidal ideation [Unknown]
  - Affect lability [Unknown]
  - Syncope [Recovered/Resolved]
  - Drug withdrawal syndrome [Unknown]
  - Anxiety [Unknown]

NARRATIVE: CASE EVENT DATE: 20141110
